FAERS Safety Report 11109214 (Version 1)
Quarter: 2015Q2

REPORT INFORMATION
  Report Type: Spontaneous
  Country: US (occurrence: US)
  Receive Date: 20150513
  Receipt Date: 20150513
  Transmission Date: 20150821
  Serious: No
  Sender: FDA-Public Use
  Company Number: US-BEH-2015050966

PATIENT
  Age: 24 Year
  Sex: Female

DRUGS (8)
  1. CLOBAZAM [Concomitant]
     Active Substance: CLOBAZAM
  2. TOPIRAMATE. [Concomitant]
     Active Substance: TOPIRAMATE
  3. PROPOFOL. [Concomitant]
     Active Substance: PROPOFOL
  4. METHYLPREDNISOLONE. [Suspect]
     Active Substance: METHYLPREDNISOLONE
     Indication: ENCEPHALITIS AUTOIMMUNE
  5. MIDAZOLAM [Concomitant]
     Active Substance: MIDAZOLAM\MIDAZOLAM HYDROCHLORIDE
  6. IVIG [Suspect]
     Active Substance: HUMAN IMMUNOGLOBULIN G
     Indication: ENCEPHALITIS AUTOIMMUNE
     Route: 042
  7. LEVETIRACETAM. [Concomitant]
     Active Substance: LEVETIRACETAM
  8. PHENYTOIN. [Concomitant]
     Active Substance: PHENYTOIN

REACTIONS (3)
  - Encephalitis autoimmune [Recovered/Resolved]
  - Drug ineffective for unapproved indication [Unknown]
  - Maternal exposure timing unspecified [Recovered/Resolved]
